FAERS Safety Report 21075514 (Version 2)
Quarter: 2022Q3

REPORT INFORMATION
  Report Type: Spontaneous
  Country: JP (occurrence: JP)
  Receive Date: 20220713
  Receipt Date: 20220906
  Transmission Date: 20221027
  Serious: Yes (Other)
  Sender: FDA-Public Use
  Company Number: JP-BAYER-2022A090942

PATIENT
  Sex: Female

DRUGS (9)
  1. EYLEA [Suspect]
     Active Substance: AFLIBERCEPT
     Indication: Neovascular age-related macular degeneration
     Dosage: 2 MG, ONCE(RIGHT EYE), SOLUTION FOR INJECTION, 40MG/ML
     Route: 031
     Dates: start: 20201124, end: 20201124
  2. EYLEA [Suspect]
     Active Substance: AFLIBERCEPT
     Dosage: 2 MG, ONCE(RIGHT EYE), SOLUTION FOR INJECTION, 40MG/ML
     Route: 031
     Dates: start: 20201215, end: 20201215
  3. EYLEA [Suspect]
     Active Substance: AFLIBERCEPT
     Dosage: 2 MG, ONCE(RIGHT EYE), SOLUTION FOR INJECTION, 40MG/ML
     Route: 031
     Dates: start: 20210119, end: 20210119
  4. EYLEA [Suspect]
     Active Substance: AFLIBERCEPT
     Dosage: 2 MG, ONCE(RIGHT EYE), SOLUTION FOR INJECTION, 40MG/ML
     Route: 031
     Dates: start: 20210323, end: 20210323
  5. EYLEA [Suspect]
     Active Substance: AFLIBERCEPT
     Dosage: 2 MG, ONCE(RIGHT EYE), SOLUTION FOR INJECTION, 40MG/ML
     Route: 031
     Dates: start: 20210803, end: 20210803
  6. EYLEA [Suspect]
     Active Substance: AFLIBERCEPT
     Dosage: 2 MG, ONCE(RIGHT EYE), SOLUTION FOR INJECTION, 40MG/ML
     Route: 031
     Dates: start: 20211022, end: 20211022
  7. EYLEA [Suspect]
     Active Substance: AFLIBERCEPT
     Dosage: 2 MG, ONCE(RIGHT EYE), SOLUTION FOR INJECTION, 40MG/ML
     Route: 031
     Dates: start: 20220114, end: 20220114
  8. EYLEA [Suspect]
     Active Substance: AFLIBERCEPT
     Dosage: 2 MG, ONCE(RIGHT EYE), SOLUTION FOR INJECTION, 40MG/ML
     Route: 031
     Dates: start: 20220315, end: 20220315
  9. EYLEA [Suspect]
     Active Substance: AFLIBERCEPT
     Dosage: 2 MG, ONCE(RIGHT EYE), SOLUTION FOR INJECTION, 40MG/ML
     Route: 031
     Dates: start: 20220621, end: 20220621

REACTIONS (1)
  - Retinal exudates [Recovering/Resolving]

NARRATIVE: CASE EVENT DATE: 20220621
